FAERS Safety Report 15046388 (Version 1)
Quarter: 2018Q2

REPORT INFORMATION
  Report Type: Spontaneous
  Country: GB (occurrence: GB)
  Receive Date: 20180621
  Receipt Date: 20180621
  Transmission Date: 20180711
  Serious: Yes (Other)
  Sender: FDA-Public Use
  Company Number: GB-TEVA-2018-GB-911265

PATIENT
  Age: 69 Year
  Sex: Female
  Weight: 66.67 kg

DRUGS (1)
  1. NITROFURANTOIN. [Suspect]
     Active Substance: NITROFURANTOIN
     Indication: URINARY TRACT INFECTION
     Dosage: 200 MILLIGRAM DAILY;
     Route: 048
     Dates: start: 20180425, end: 20180428

REACTIONS (6)
  - Blister [Recovering/Resolving]
  - Peripheral swelling [Unknown]
  - Skin burning sensation [Unknown]
  - Rash [Recovering/Resolving]
  - Pruritus [Unknown]
  - Pain in extremity [Unknown]

NARRATIVE: CASE EVENT DATE: 20180425
